FAERS Safety Report 23887387 (Version 1)
Quarter: 2024Q2

REPORT INFORMATION
  Report Type: Spontaneous
  Country: US (occurrence: US)
  Receive Date: 20240523
  Receipt Date: 20240523
  Transmission Date: 20240716
  Serious: No
  Sender: FDA-Public Use
  Company Number: US-ELI_LILLY_AND_COMPANY-US202405010813

PATIENT
  Age: 67 Year
  Sex: Female

DRUGS (5)
  1. ZEPBOUND [Suspect]
     Active Substance: TIRZEPATIDE
     Indication: Hypoglycaemia
     Dosage: 2.5 MG, WEEKLY (1/W)
     Route: 058
     Dates: start: 20240510
  2. ZEPBOUND [Suspect]
     Active Substance: TIRZEPATIDE
     Indication: Hypoglycaemia
     Dosage: 2.5 MG, WEEKLY (1/W)
     Route: 058
     Dates: start: 20240510
  3. ZEPBOUND [Suspect]
     Active Substance: TIRZEPATIDE
     Indication: Hypoglycaemia
     Dosage: 2.5 MG, WEEKLY (1/W)
     Route: 058
     Dates: start: 20240510
  4. ZEPBOUND [Suspect]
     Active Substance: TIRZEPATIDE
     Indication: Hypoglycaemia
     Dosage: 2.5 MG, WEEKLY (1/W)
     Route: 058
     Dates: start: 20240510
  5. REPATHA [Concomitant]
     Active Substance: EVOLOCUMAB
     Indication: Product used for unknown indication

REACTIONS (2)
  - Off label use [Unknown]
  - Extra dose administered [Unknown]

NARRATIVE: CASE EVENT DATE: 20240510
